FAERS Safety Report 8587577-X (Version None)
Quarter: 2012Q3

REPORT INFORMATION
  Report Type: 
  Country: None (occurrence: None)
  Receive Date: 20120810
  Receipt Date: 20120702
  Transmission Date: 20120928
  Serious: Yes (Other)
  Sender: FDA-Public Use
  Company Number: PHHY2012JP067941

PATIENT
  Age: 20 Year
  Sex: Male

DRUGS (1)
  1. FAMCICLOVIR [Suspect]
     Route: 048
     Dates: start: 20120101, end: 20120101

REACTIONS (1)
  - ALTERED STATE OF CONSCIOUSNESS [None]
